FAERS Safety Report 19420090 (Version 2)
Quarter: 2021Q4

REPORT INFORMATION
  Report Type: Report from Study
  Country: KR (occurrence: KR)
  Receive Date: 20210615
  Receipt Date: 20211118
  Transmission Date: 20220303
  Serious: Yes (Hospitalization)
  Sender: FDA-Public Use
  Company Number: KR-AMGEN-KORNI2021030621

PATIENT
  Age: 74 Year
  Sex: Male
  Weight: 42.7 kg

DRUGS (4)
  1. CARFILZOMIB [Suspect]
     Active Substance: CARFILZOMIB
     Indication: Plasma cell myeloma
     Dosage: 80.6 MILLIGRAM
     Route: 042
     Dates: start: 20200409
  2. DEXAMETHASONE [Suspect]
     Active Substance: DEXAMETHASONE
     Indication: Plasma cell myeloma
     Dosage: 20 MILLIGRAM
     Route: 065
     Dates: start: 20200702
  3. VIVIR [Concomitant]
     Dosage: 200 MILLIGRAM
     Dates: start: 20200423, end: 20200818
  4. ALGIGEN [Concomitant]
     Dosage: 1000 MILLIGRAM
     Dates: start: 20200702, end: 20200709

REACTIONS (2)
  - Cancer pain [Recovered/Resolved]
  - Hypercalcaemia [Recovered/Resolved]

NARRATIVE: CASE EVENT DATE: 20200730
